FAERS Safety Report 21732095 (Version 2)
Quarter: 2022Q4

REPORT INFORMATION
  Report Type: Spontaneous
  Country: US (occurrence: US)
  Receive Date: 20221215
  Receipt Date: 20221219
  Transmission Date: 20230112
  Serious: Yes (Life-Threatening, Hospitalization, Other)
  Sender: FDA-Public Use
  Company Number: None

PATIENT
  Age: 37 Year
  Sex: Male

DRUGS (2)
  1. TACROLIMUS [Suspect]
     Active Substance: TACROLIMUS
     Indication: Renal and pancreas transplant
     Dosage: UNK
     Route: 065
  2. AZATHIOPRINE [Suspect]
     Active Substance: AZATHIOPRINE
     Indication: Renal and pancreas transplant
     Dosage: UNK
     Route: 065

REACTIONS (8)
  - Extravasation [Recovered/Resolved]
  - Arterial rupture [Recovered/Resolved]
  - Haematoma muscle [Recovered/Resolved]
  - Carotid artery perforation [Recovered/Resolved]
  - Vasculitis [Unknown]
  - Cerebral infarction [Recovered/Resolved]
  - Cytomegalovirus viraemia [Recovered/Resolved]
  - Off label use [Unknown]
